FAERS Safety Report 10025214 (Version 1)
Quarter: 2014Q1

REPORT INFORMATION
  Report Type: Spontaneous
  Country: IT (occurrence: IT)
  Receive Date: 20140320
  Receipt Date: 20140320
  Transmission Date: 20141002
  Serious: Yes (Other)
  Sender: FDA-Public Use
  Company Number: IT-BRISTOL-MYERS SQUIBB COMPANY-20426201

PATIENT
  Age: 73 Year
  Sex: Male

DRUGS (5)
  1. COUMADIN TABS 5 MG [Suspect]
     Indication: CARDIAC VALVE PROSTHESIS USER
     Dosage: INTERRUPTED:23FEB14
     Route: 048
     Dates: start: 20071011
  2. CEFTRIAXONE [Interacting]
     Indication: PNEUMONIA
     Dosage: 1 DF:1GR/3.5ML INJECTION SOLUTION?ALSO 14GR/3.5ML WAS ADMINISTERED 2/DIE 3 DAYS AND 1/DIE 2 DAYS.
     Route: 048
     Dates: start: 20140212, end: 20140216
  3. MACLADIN [Interacting]
     Indication: PNEUMONIA
     Route: 048
     Dates: start: 20140222, end: 20140223
  4. CARVEDILOL [Concomitant]
     Route: 048
  5. OMNIC [Concomitant]
     Route: 048

REACTIONS (3)
  - Pneumonia [Unknown]
  - International normalised ratio increased [Recovering/Resolving]
  - Drug interaction [Unknown]
